FAERS Safety Report 21269121 (Version 1)
Quarter: 2022Q3

REPORT INFORMATION
  Report Type: Spontaneous
  Country: US (occurrence: None)
  Receive Date: 20220829
  Receipt Date: 20220829
  Transmission Date: 20221027
  Serious: No
  Sender: FDA-Public Use
  Company Number: None

PATIENT

DRUGS (2)
  1. OTEZLA [Suspect]
     Active Substance: APREMILAST
     Indication: Dermatitis atopic
     Dosage: 30MG TWICE DAILY ORAL?
     Route: 048
     Dates: start: 20220107
  2. OTEZLA [Suspect]
     Active Substance: APREMILAST
     Indication: Psoriasis

REACTIONS (6)
  - Rash macular [None]
  - Pruritus [None]
  - Skin burning sensation [None]
  - Skin disorder [None]
  - Condition aggravated [None]
  - Therapy cessation [None]
